FAERS Safety Report 7468984-5 (Version None)
Quarter: 2011Q2

REPORT INFORMATION
  Report Type: 
  Country: None (occurrence: None)
  Receive Date: 20110429
  Receipt Date: 20110419
  Transmission Date: 20111010
  Serious: Yes (Other)
  Sender: FDA-Public Use
  Company Number: B0714748A

PATIENT
  Age: 63 Year
  Sex: Male

DRUGS (2)
  1. STEM CELL TRANSPLANT [Concomitant]
  2. MELPHALAN HYDROCHLORIDE [Suspect]
     Indication: CHEMOTHERAPY
     Dates: start: 20100701

REACTIONS (11)
  - NAUSEA [None]
  - BLOOD PRESSURE INCREASED [None]
  - BRONCHOALVEOLAR LAVAGE ABNORMAL [None]
  - TRANSFUSION-TRANSMITTED INFECTIOUS DISEASE [None]
  - FEBRILE NEUTROPENIA [None]
  - CRYPTOCOCCAL FUNGAEMIA [None]
  - DIZZINESS [None]
  - LUNG CONSOLIDATION [None]
  - RENAL FAILURE [None]
  - PNEUMONIA [None]
  - MUCOSAL INFLAMMATION [None]
